FAERS Safety Report 12676064 (Version 3)
Quarter: 2016Q3

REPORT INFORMATION
  Report Type: Report from Study
  Country: US (occurrence: US)
  Receive Date: 20160823
  Receipt Date: 20160929
  Transmission Date: 20161109
  Serious: Yes (Hospitalization)
  Sender: FDA-Public Use
  Company Number: PHEH2016US020797

PATIENT
  Age: 52 Year
  Sex: Female
  Weight: 87.98 kg

DRUGS (2)
  1. GILENYA [Suspect]
     Active Substance: FINGOLIMOD HYDROCHLORIDE
     Indication: RELAPSING-REMITTING MULTIPLE SCLEROSIS
     Dosage: 0.5 MG, QD
     Route: 048
     Dates: start: 20160816, end: 20160816
  2. TOPIRAMATE. [Concomitant]
     Active Substance: TOPIRAMATE
     Indication: DRUG THERAPY
     Dosage: UNK
     Route: 065

REACTIONS (3)
  - Atrioventricular block second degree [Recovered/Resolved]
  - Bradycardia [Unknown]
  - Cardiac flutter [Unknown]

NARRATIVE: CASE EVENT DATE: 20160816
